FAERS Safety Report 19508475 (Version 1)
Quarter: 2021Q3

REPORT INFORMATION
  Report Type: Spontaneous
  Country: US (occurrence: US)
  Receive Date: 20210708
  Receipt Date: 20210708
  Transmission Date: 20211014
  Serious: Yes (Hospitalization, Other)
  Sender: FDA-Public Use
  Company Number: US-GLAXOSMITHKLINE-USCH2021GSK043532

PATIENT
  Age: 29 Year
  Sex: Female

DRUGS (1)
  1. GOODYS [Suspect]
     Active Substance: ACETAMINOPHEN\ASPIRIN\CAFFEINE
     Indication: MIGRAINE
     Dosage: UNK

REACTIONS (12)
  - Incorrect dose administered [Unknown]
  - Toxicity to various agents [Unknown]
  - Cough [Unknown]
  - Proteinuria [Recovered/Resolved]
  - Sinus congestion [Unknown]
  - Interstitial lung disease [Recovering/Resolving]
  - Focal segmental glomerulosclerosis [Unknown]
  - Renal impairment [Unknown]
  - Pneumonia [Unknown]
  - Dyspnoea [Unknown]
  - Rales [Unknown]
  - Lung opacity [Recovered/Resolved]
